FAERS Safety Report 5669972-1 (Version None)
Quarter: 2008Q1

REPORT INFORMATION
  Report Type: 
  Country: None (occurrence: None)
  Receive Date: 20080312
  Receipt Date: 20080302
  Transmission Date: 20080703
  Serious: Yes (Other)
  Sender: FDA-Public Use
  Company Number: 18621

PATIENT
  Age: 7 Year
  Sex: Female

DRUGS (6)
  1. CYTARABINE [Suspect]
     Indication: ACUTE MYELOID LEUKAEMIA
  2. CYTARABINE [Suspect]
     Indication: JUVENILE CHRONIC MYELOMONOCYTIC LEUKAEMIA
  3. FLUDARABINE [Suspect]
     Indication: ACUTE MYELOID LEUKAEMIA
  4. FLUDARABINE [Suspect]
     Indication: JUVENILE CHRONIC MYELOMONOCYTIC LEUKAEMIA
  5. NEUPOGEN [Suspect]
     Indication: ACUTE MYELOID LEUKAEMIA
  6. NEUPOGEN [Suspect]
     Indication: JUVENILE CHRONIC MYELOMONOCYTIC LEUKAEMIA

REACTIONS (5)
  - ASPERGILLOSIS [None]
  - EYELID PTOSIS [None]
  - NEUTROPENIA [None]
  - SINUSITIS FUNGAL [None]
  - STRABISMUS [None]
